FAERS Safety Report 9244862 (Version 1)
Quarter: 2013Q2

REPORT INFORMATION
  Report Type: Spontaneous
  Country: GB (occurrence: GB)
  Receive Date: 20130422
  Receipt Date: 20130422
  Transmission Date: 20140414
  Serious: Yes (Other)
  Sender: FDA-Public Use
  Company Number: GB-JNJFOC-20130411252

PATIENT
  Sex: Female

DRUGS (1)
  1. TRAMADOL HYDROCHLORIDE [Suspect]
     Indication: NECK PAIN
     Dosage: TOOK 2 TABLETS OF TRAMADOL HYDROCHLORIDE
     Route: 048

REACTIONS (9)
  - Lip swelling [Unknown]
  - Paraesthesia oral [Unknown]
  - Dry mouth [Unknown]
  - Lip dry [Unknown]
  - Vomiting [Unknown]
  - Palpitations [Unknown]
  - Malaise [Unknown]
  - Tremor [Unknown]
  - Pruritus [Unknown]
